FAERS Safety Report 24258969 (Version 1)
Quarter: 2024Q3

REPORT INFORMATION
  Report Type: Spontaneous
  Country: JP (occurrence: JP)
  Receive Date: 20240828
  Receipt Date: 20240828
  Transmission Date: 20241016
  Serious: Yes (Other)
  Sender: AMGEN
  Company Number: JP-AMGEN-JPNSP2024168413

PATIENT
  Sex: Female

DRUGS (1)
  1. BLINCYTO [Suspect]
     Active Substance: BLINATUMOMAB
     Indication: Acute lymphocytic leukaemia
     Dosage: 28 MICROGRAM, QD, DRIP INFUSION
     Route: 042
     Dates: start: 20240718, end: 20240814

REACTIONS (1)
  - Acute lymphocytic leukaemia recurrent [Recovered/Resolved]

NARRATIVE: CASE EVENT DATE: 20240820
